FAERS Safety Report 26160940 (Version 1)
Quarter: 2025Q4

REPORT INFORMATION
  Report Type: Spontaneous
  Country: EU (occurrence: EU)
  Receive Date: 20251216
  Receipt Date: 20251216
  Transmission Date: 20260117
  Serious: Yes (Life-Threatening, Hospitalization, Other)
  Sender: BRISTOL-MYERS SQUIBB COMPANY
  Company Number: None

PATIENT
  Age: 69 Year
  Sex: Male

DRUGS (2)
  1. IPILIMUMAB [Suspect]
     Active Substance: IPILIMUMAB
     Indication: Pleural mesothelioma malignant
     Dosage: 76 MG OF YERVOY 50MG V MA 041275013 BATCH 8132818 EXP 03/31/2027
     Route: 042
     Dates: start: 20251028, end: 20251028
  2. NIVOLUMAB [Suspect]
     Active Substance: NIVOLUMAB
     Indication: Pleural mesothelioma malignant
     Dosage: 360MG OF OPDIVO 240MG MA 044291019 BATCH 8141019 EXP 05/31/2027
     Route: 042
     Dates: start: 20251028, end: 20251028

REACTIONS (1)
  - Autoimmune myositis [Not Recovered/Not Resolved]

NARRATIVE: CASE EVENT DATE: 20251124
